FAERS Safety Report 23785531 (Version 4)
Quarter: 2024Q3

REPORT INFORMATION
  Report Type: Spontaneous
  Country: US (occurrence: US)
  Receive Date: 20240425
  Receipt Date: 20240821
  Transmission Date: 20241017
  Serious: Yes (Other)
  Sender: BIOMARIN
  Company Number: US-SA-SAC20240418000558

PATIENT

DRUGS (1)
  1. LARONIDASE [Suspect]
     Active Substance: LARONIDASE
     Indication: Mucopolysaccharidosis I
     Dosage: 17.4 (UNIT NOT KNOWN), QW
     Route: 042
     Dates: start: 20240409

REACTIONS (10)
  - Pelvic fracture [Not Recovered/Not Resolved]
  - Coccydynia [Not Recovered/Not Resolved]
  - Arthralgia [Not Recovered/Not Resolved]
  - Accident [Not Recovered/Not Resolved]
  - Head injury [Not Recovered/Not Resolved]
  - Pelvic bone injury [Not Recovered/Not Resolved]
  - Fall [Not Recovered/Not Resolved]
  - Gait inability [Not Recovered/Not Resolved]
  - Dizziness [Not Recovered/Not Resolved]
  - Snoring [Not Recovered/Not Resolved]

NARRATIVE: CASE EVENT DATE: 20240101
